FAERS Safety Report 8369179-3 (Version None)
Quarter: 2012Q1

REPORT INFORMATION
  Report Type: 
  Country: None (occurrence: None)
  Receive Date: 20120323
  Receipt Date: 20110921
  Transmission Date: 20120608
  Serious: Yes (Hospitalization)
  Sender: FDA-Public Use
  Company Number: 163-21880-11082575

PATIENT
  Age: 69 Year
  Sex: Female

DRUGS (2)
  1. REVLIMID [Suspect]
     Indication: MYELODYSPLASTIC SYNDROME
     Dosage: 5 MG, DAILY X28 DAYS, PO
     Route: 048
     Dates: start: 20100826, end: 20110816
  2. COUMADIN [Concomitant]

REACTIONS (4)
  - ASTHENIA [None]
  - CHEST DISCOMFORT [None]
  - SKIN DISCOLOURATION [None]
  - DISEASE PROGRESSION [None]
